FAERS Safety Report 16170901 (Version 1)
Quarter: 2019Q2

REPORT INFORMATION
  Report Type: Spontaneous
  Country: GB (occurrence: GB)
  Receive Date: 20190408
  Receipt Date: 20190408
  Transmission Date: 20190711
  Serious: Yes (Life-Threatening, Hospitalization)
  Sender: FDA-Public Use
  Company Number: GB-MYLANLABS-2019M1031702

PATIENT
  Age: 84 Year
  Sex: Male

DRUGS (2)
  1. CO-AMOXICLAV                       /00756801/ [Suspect]
     Active Substance: AMOXICILLIN\CLAVULANIC ACID
     Indication: PNEUMONIA
     Dosage: 1.2 GRAM
     Route: 042
  2. CLARITHROMYCIN. [Suspect]
     Active Substance: CLARITHROMYCIN
     Indication: PNEUMONIA
     Dosage: 500 MILLIGRAM
     Route: 042

REACTIONS (5)
  - Chills [Unknown]
  - Hypersensitivity [Recovering/Resolving]
  - Malaise [Unknown]
  - Flushing [Unknown]
  - Coma scale abnormal [Unknown]
